FAERS Safety Report 11095949 (Version 1)
Quarter: 2015Q2

REPORT INFORMATION
  Report Type: Spontaneous
  Country: GB (occurrence: None)
  Receive Date: 20150505
  Receipt Date: 20150505
  Transmission Date: 20150821
  Serious: Yes (Other)
  Sender: FDA-Public Use
  Company Number: 20151341

PATIENT
  Age: 41 Year
  Sex: Male

DRUGS (2)
  1. METHOTREXATE SODIUM (METHOTREXATE SODIUM) [Suspect]
     Active Substance: METHOTREXATE SODIUM
  2. SIMPONI [Suspect]
     Active Substance: GOLIMUMAB

REACTIONS (1)
  - Hiatus hernia [None]
